FAERS Safety Report 7648376-6 (Version None)
Quarter: 2011Q3

REPORT INFORMATION
  Report Type: 
  Country: None (occurrence: None)
  Receive Date: 20110801
  Receipt Date: 20110722
  Transmission Date: 20111222
  Serious: Yes (Hospitalization, Other)
  Sender: FDA-Public Use
  Company Number: US-BAXTER-2011BH023447

PATIENT
  Sex: Female

DRUGS (1)
  1. DIANEAL [Suspect]
     Indication: PERITONEAL DIALYSIS
     Route: 033

REACTIONS (5)
  - MENTAL DISORDER [None]
  - CARDIAC FAILURE [None]
  - PNEUMONIA [None]
  - WRONG DRUG ADMINISTERED [None]
  - TACHYCARDIA [None]
